FAERS Safety Report 8277477-7 (Version None)
Quarter: 2012Q2

REPORT INFORMATION
  Report Type: 
  Country: None (occurrence: None)
  Receive Date: 20120412
  Receipt Date: 20120403
  Transmission Date: 20120825
  Serious: Yes (Disabling)
  Sender: FDA-Public Use
  Company Number: PHHY2012FI030607

PATIENT
  Sex: Male

DRUGS (2)
  1. METOPROLOL TARTRATE [Suspect]
     Indication: BLOOD PRESSURE
     Dosage: 1 DF, QD
     Route: 048
     Dates: start: 20120210, end: 20120402
  2. ATACAND [Concomitant]
     Dosage: 0.5 DF, DAILY

REACTIONS (3)
  - JOINT INJURY [None]
  - NIGHTMARE [None]
  - SOMNAMBULISM [None]
